FAERS Safety Report 5856344-X (Version None)
Quarter: 2008Q3

REPORT INFORMATION
  Report Type: 
  Country: None (occurrence: None)
  Receive Date: 20080821
  Receipt Date: 20080813
  Transmission Date: 20090109
  Serious: Yes (Other)
  Sender: FDA-Public Use
  Company Number: 2008SP016475

PATIENT
  Age: 60 Year
  Sex: Female

DRUGS (1)
  1. PEG-INTRON [Suspect]
     Indication: NEOPLASM MALIGNANT

REACTIONS (1)
  - GENERALISED OEDEMA [None]
